FAERS Safety Report 19036208 (Version 14)
Quarter: 2022Q3

REPORT INFORMATION
  Report Type: Report from Study
  Country: JP (occurrence: JP)
  Receive Date: 20210321
  Receipt Date: 20220729
  Transmission Date: 20221026
  Serious: Yes (Hospitalization, Other)
  Sender: FDA-Public Use
  Company Number: JP-BRISTOL-MYERS SQUIBB COMPANY-BMS-2021-012973

PATIENT
  Age: 70 Year
  Sex: Male
  Weight: 57.9 kg

DRUGS (8)
  1. YERVOY [Suspect]
     Active Substance: IPILIMUMAB
     Indication: Non-small cell lung cancer recurrent
     Dosage: 1 MG/KG
     Route: 041
     Dates: start: 20210129
  2. YERVOY [Suspect]
     Active Substance: IPILIMUMAB
  3. YERVOY [Suspect]
     Active Substance: IPILIMUMAB
  4. OPDIVO [Suspect]
     Active Substance: NIVOLUMAB
     Indication: Non-small cell lung cancer recurrent
     Route: 041
     Dates: start: 20210129
  5. OPDIVO [Suspect]
     Active Substance: NIVOLUMAB
  6. OPDIVO [Suspect]
     Active Substance: NIVOLUMAB
  7. DOCETAXEL [Suspect]
     Active Substance: DOCETAXEL
     Indication: Non-small cell lung cancer recurrent
     Route: 065
     Dates: start: 20210825, end: 20210921
  8. RAMUCIRUMAB [Suspect]
     Active Substance: RAMUCIRUMAB
     Indication: Non-small cell lung cancer recurrent
     Route: 065
     Dates: start: 20210825, end: 20210921

REACTIONS (6)
  - Hepatitis [Recovered/Resolved]
  - Chronic hepatitis [Unknown]
  - Interstitial lung disease [Recovering/Resolving]
  - Malignant neoplasm progression [Unknown]
  - Rash pruritic [Recovered/Resolved]
  - Asthma [Recovered/Resolved]

NARRATIVE: CASE EVENT DATE: 20210204
